FAERS Safety Report 11268928 (Version 1)
Quarter: 2015Q3

REPORT INFORMATION
  Report Type: Spontaneous
  Country: US (occurrence: None)
  Receive Date: 20150713
  Receipt Date: 20150713
  Transmission Date: 20151125
  Serious: Yes (Death, Life-Threatening, Hospitalization, Disabling)
  Sender: FDA-Public Use
  Company Number: None

PATIENT
  Age: 66 Year
  Sex: Female
  Weight: 105 kg

DRUGS (14)
  1. ALBUMIN [Concomitant]
     Active Substance: ALBUMIN (HUMAN)
  2. NAFCILLIN [Concomitant]
     Active Substance: NAFCILLIN\NAFCILLIN SODIUM
  3. AMINOCAPROIC ACID. [Concomitant]
     Active Substance: AMINOCAPROIC ACID
  4. FENTANYL. [Concomitant]
     Active Substance: FENTANYL
  5. MIDAZOLAM [Concomitant]
     Active Substance: MIDAZOLAM\MIDAZOLAM HYDROCHLORIDE
  6. VANCOMYCIN [Concomitant]
     Active Substance: VANCOMYCIN
  7. BUPIVACAINE [Concomitant]
     Active Substance: BUPIVACAINE
  8. HEPARIN FLUSH BAG [Concomitant]
  9. PROPOFOL. [Concomitant]
     Active Substance: PROPOFOL
  10. ROCURONIUM [Concomitant]
     Active Substance: ROCURONIUM BROMIDE
  11. THROMBIN [Concomitant]
     Active Substance: THROMBIN
  12. HEPARIN [Suspect]
     Active Substance: HEPARIN SODIUM
     Indication: ANTICOAGULANT THERAPY
     Route: 042
     Dates: start: 20150611, end: 20150611
  13. ADENOSINE. [Concomitant]
     Active Substance: ADENOSINE
  14. POLYSPORIN [Concomitant]
     Active Substance: BACITRACIN ZINC\POLYMYXIN B SULFATE

REACTIONS (2)
  - Heparin-induced thrombocytopenia [None]
  - Cardio-respiratory arrest [None]

NARRATIVE: CASE EVENT DATE: 20150617
